FAERS Safety Report 6565019-3 (Version None)
Quarter: 2010Q1

REPORT INFORMATION
  Report Type: 
  Country: None (occurrence: None)
  Receive Date: 20100201
  Receipt Date: 20100121
  Transmission Date: 20100710
  Serious: Yes (Death, Other)
  Sender: FDA-Public Use
  Company Number: JP-BRISTOL-MYERS SQUIBB COMPANY-14897532

PATIENT
  Age: 57 Year
  Sex: Male
  Weight: 60 kg

DRUGS (9)
  1. ABILIFY [Suspect]
     Indication: HALLUCINATION
     Dosage: 11AUG09-17AUG09:12MG(7D) 18AUG-21SEP:24MG(35D) 22SEP-20OCT09:30MG(29D)
     Route: 048
     Dates: start: 20090811, end: 20091020
  2. ABILIFY [Suspect]
     Indication: DELUSION
     Dosage: 11AUG09-17AUG09:12MG(7D) 18AUG-21SEP:24MG(35D) 22SEP-20OCT09:30MG(29D)
     Route: 048
     Dates: start: 20090811, end: 20091020
  3. LEXIN [Concomitant]
     Dosage: TABLET
     Dates: end: 20091104
  4. AKINETON [Concomitant]
     Dosage: TABLET
  5. TETRAMIDE [Concomitant]
     Dosage: TABLET
     Dates: start: 20090623, end: 20091104
  6. LEVOTOMIN [Concomitant]
     Dosage: TABLET
     Dates: start: 20090811, end: 20091104
  7. ALLEGRA [Concomitant]
     Dosage: TABLET
     Dates: start: 20090602, end: 20091104
  8. MAGMITT [Concomitant]
     Dosage: TABLET
     Dates: start: 20090915, end: 20091104
  9. LUVOX [Concomitant]
     Dosage: TABLET
     Dates: start: 20091006, end: 20091104

REACTIONS (2)
  - CEREBRAL INFARCTION [None]
  - HYPERTENSION [None]
